FAERS Safety Report 23509415 (Version 1)
Quarter: 2024Q1

REPORT INFORMATION
  Report Type: Other
  Country: US (occurrence: US)
  Receive Date: 20240210
  Receipt Date: 20240210
  Transmission Date: 20240409
  Serious: No
  Sender: FDA-Public Use
  Company Number: US-TRAVERE-2024TVT00106

PATIENT
  Age: 15 Year
  Sex: Female

DRUGS (6)
  1. CHOLBAM [Suspect]
     Active Substance: CHOLIC ACID
     Indication: Inborn error of metabolism
     Route: 048
     Dates: start: 20170719
  2. CHOLBAM [Suspect]
     Active Substance: CHOLIC ACID
     Route: 048
  3. Claritin Allergy Childrens [Concomitant]
  4. OMEGA-3 FATTY ACIDS [Concomitant]
     Active Substance: OMEGA-3 FATTY ACIDS
  5. MEPHYTON [Concomitant]
     Active Substance: PHYTONADIONE
  6. Ocuvite Eye Heatlh Gummies [Concomitant]

REACTIONS (1)
  - Influenza [Unknown]

NARRATIVE: CASE EVENT DATE: 20231201
